FAERS Safety Report 19036678 (Version 1)
Quarter: 2021Q1

REPORT INFORMATION
  Report Type: Spontaneous
  Country: US (occurrence: US)
  Receive Date: 20210322
  Receipt Date: 20210322
  Transmission Date: 20210420
  Serious: Yes (Hospitalization)
  Sender: FDA-Public Use
  Company Number: None

PATIENT
  Age: 63 Year
  Sex: Male

DRUGS (2)
  1. ENOXAPARIN (ENOXAPARIN 150MG/ML INJ,SYRINGE,1ML) [Suspect]
     Active Substance: ENOXAPARIN
     Route: 058
     Dates: start: 20210219, end: 20210301
  2. WARFARIN (WARFARIN NA (EXELAN) 5MG TAB) [Suspect]
     Active Substance: WARFARIN SODIUM
     Indication: DEEP VEIN THROMBOSIS
     Dosage: DOSE OR AMOUNT: MG
     Route: 058
     Dates: start: 20210220, end: 20210302

REACTIONS (3)
  - Haemorrhage [None]
  - Haematoma [None]
  - Anaemia [None]

NARRATIVE: CASE EVENT DATE: 20210302
